FAERS Safety Report 25950149 (Version 1)
Quarter: 2025Q4

REPORT INFORMATION
  Report Type: Spontaneous
  Country: JP (occurrence: JP)
  Receive Date: 20251022
  Receipt Date: 20251022
  Transmission Date: 20260117
  Serious: Yes (Other)
  Sender: GLAXOSMITHKLINE
  Company Number: JP-GSKJP-JP2025JPN120644AA

PATIENT
  Age: 80 Year
  Sex: Female

DRUGS (1)
  1. DAPRODUSTAT [Suspect]
     Active Substance: DAPRODUSTAT
     Dosage: 2 MG

REACTIONS (3)
  - Deep vein thrombosis [Unknown]
  - Cerebral infarction [Unknown]
  - Cerebral haemorrhage [Unknown]
